FAERS Safety Report 13053658 (Version 1)
Quarter: 2016Q4

REPORT INFORMATION
  Report Type: Spontaneous
  Country: US (occurrence: US)
  Receive Date: 20161221
  Receipt Date: 20161221
  Transmission Date: 20170207
  Serious: No
  Sender: FDA-Public Use
  Company Number: None

PATIENT
  Age: 15 Year
  Sex: Female
  Weight: 63.56 kg

DRUGS (2)
  1. ARIPIPRAZOLE 15MG TRIGEN [Suspect]
     Active Substance: ARIPIPRAZOLE
     Indication: BIPOLAR DISORDER
     Route: 048
     Dates: start: 2014
  2. LAMICTAL [Suspect]
     Active Substance: LAMOTRIGINE
     Indication: BIPOLAR DISORDER
     Dosage: QD PO ALLERGIC REACTION
     Route: 048
     Dates: start: 2014, end: 2016

REACTIONS (10)
  - Mood altered [None]
  - Disease recurrence [None]
  - Fatigue [None]
  - Laceration [None]
  - Drug hypersensitivity [None]
  - Drug ineffective [None]
  - Anxiety [None]
  - Suicide attempt [None]
  - Product substitution issue [None]
  - Intentional self-injury [None]

NARRATIVE: CASE EVENT DATE: 20161221
